FAERS Safety Report 25256937 (Version 2)
Quarter: 2025Q3

REPORT INFORMATION
  Report Type: Spontaneous
  Country: JP (occurrence: JP)
  Receive Date: 20250430
  Receipt Date: 20250810
  Transmission Date: 20251020
  Serious: Yes (Other)
  Sender: ALEXION PHARMACEUTICALS
  Company Number: JP-ASTRAZENECA-250040087_013120_P_1

PATIENT
  Age: 64 Year
  Sex: Female
  Weight: 37 kg

DRUGS (15)
  1. DURVALUMAB [Suspect]
     Active Substance: DURVALUMAB
     Indication: Non-small cell lung cancer
  2. OLANZAPINE [Concomitant]
     Active Substance: OLANZAPINE
  3. METOCLOPRAMIDE [Concomitant]
     Active Substance: METOCLOPRAMIDE
  4. ACETAMINOPHEN [Concomitant]
     Active Substance: ACETAMINOPHEN
  5. SENNOSIDES [Concomitant]
     Active Substance: SENNOSIDES
  6. AMITIZA [Concomitant]
     Active Substance: LUBIPROSTONE
  7. LEVOTHYROXINE [Concomitant]
     Active Substance: LEVOTHYROXINE
  8. URSODIOL [Concomitant]
     Active Substance: URSODIOL
  9. PEMAFIBRATE [Concomitant]
     Active Substance: PEMAFIBRATE
  10. TRELEGY ELLIPTA [Concomitant]
     Active Substance: FLUTICASONE FUROATE\UMECLIDINIUM BROMIDE\VILANTEROL TRIFENATATE
  11. LUMAKRAS [Concomitant]
     Active Substance: SOTORASIB
     Indication: Non-small cell lung cancer
  12. LUMAKRAS [Concomitant]
     Active Substance: SOTORASIB
  13. LUMAKRAS [Concomitant]
     Active Substance: SOTORASIB
  14. ESOMEPRAZOLE [Concomitant]
     Active Substance: ESOMEPRAZOLE
  15. ALFACALCIDOL [Concomitant]
     Active Substance: ALFACALCIDOL

REACTIONS (7)
  - Aspartate aminotransferase increased [Not Recovered/Not Resolved]
  - Alanine aminotransferase increased [Not Recovered/Not Resolved]
  - Immune-mediated hepatitis [Not Recovered/Not Resolved]
  - Drug-induced liver injury [Not Recovered/Not Resolved]
  - Pneumonia [Unknown]
  - Cough [Unknown]
  - Dyspnoea [Unknown]

NARRATIVE: CASE EVENT DATE: 20241108
